FAERS Safety Report 11228056 (Version 1)
Quarter: 2015Q2

REPORT INFORMATION
  Report Type: Spontaneous
  Country: CN (occurrence: None)
  Receive Date: 20150626
  Receipt Date: 20150626
  Transmission Date: 20150821
  Serious: Yes (Hospitalization, Other)
  Sender: FDA-Public Use
  Company Number: NMS-00148

PATIENT
  Age: 52 Year
  Sex: Male

DRUGS (1)
  1. NITROGLYCERIN. [Suspect]
     Active Substance: NITROGLYCERIN
     Indication: CHEST PAIN

REACTIONS (4)
  - Aortic aneurysm rupture [None]
  - Pleural effusion [None]
  - Haemothorax [None]
  - Mediastinal haematoma [None]

NARRATIVE: CASE EVENT DATE: 201208
